FAERS Safety Report 13910187 (Version 1)
Quarter: 2017Q3

REPORT INFORMATION
  Report Type: Spontaneous
  Country: US (occurrence: None)
  Receive Date: 20170822
  Receipt Date: 20170822
  Transmission Date: 20171127
  Serious: Yes (Hospitalization)
  Sender: FDA-Public Use
  Company Number: None

PATIENT
  Age: 86 Year
  Sex: Female
  Weight: 62.6 kg

DRUGS (10)
  1. ELIQUIS [Concomitant]
     Active Substance: APIXABAN
  2. POTASSIUM CHLORIDE. [Concomitant]
     Active Substance: POTASSIUM CHLORIDE
  3. JAKAFI [Concomitant]
     Active Substance: RUXOLITINIB
  4. LISINOPRIL. [Concomitant]
     Active Substance: LISINOPRIL
  5. FUROSEMIDE. [Concomitant]
     Active Substance: FUROSEMIDE
  6. JADENU [Concomitant]
     Active Substance: DEFERASIROX
  7. DILTIAZEM. [Concomitant]
     Active Substance: DILTIAZEM
  8. HYDROCOD/ACETAM 5-325MG TAB MAL//GENERIC FOR NORCO 5-325MG [Suspect]
     Active Substance: ACETAMINOPHEN\HYDROCODONE BITARTRATE
     Indication: ARTHRALGIA
     Dosage: 5-325 MG QTY 12 1 EVERY 6 HRS MOUTH
     Route: 048
     Dates: start: 20170608, end: 20170612
  9. HYDROCOD/ACETAM 5-325MG TAB MAL//GENERIC FOR NORCO 5-325MG [Suspect]
     Active Substance: ACETAMINOPHEN\HYDROCODONE BITARTRATE
     Indication: PAIN IN EXTREMITY
     Dosage: 5-325 MG QTY 12 1 EVERY 6 HRS MOUTH
     Route: 048
     Dates: start: 20170608, end: 20170612
  10. ASPIRIN -81 [Concomitant]

REACTIONS (4)
  - Faecaloma [None]
  - Anal fissure [None]
  - Arthropathy [None]
  - Proctalgia [None]

NARRATIVE: CASE EVENT DATE: 20170607
